FAERS Safety Report 12275933 (Version 1)
Quarter: 2016Q2

REPORT INFORMATION
  Report Type: Spontaneous
  Country: CA (occurrence: CA)
  Receive Date: 20160418
  Receipt Date: 20160418
  Transmission Date: 20160815
  Serious: Yes (Hospitalization)
  Sender: FDA-Public Use
  Company Number: CA-ROCHE-1741016

PATIENT
  Age: 12 Year
  Sex: Female
  Weight: 64 kg

DRUGS (16)
  1. ANAKINRA [Suspect]
     Active Substance: ANAKINRA
     Indication: RHEUMATOID ARTHRITIS
     Dosage: THERAPY DURATION: 3 YEARS
     Route: 058
  2. ETANERCEPT [Suspect]
     Active Substance: ETANERCEPT
     Dosage: THERAPY DURATION: 4 MONTHS
     Route: 058
  3. GAMMAGARD [Suspect]
     Active Substance: HUMAN IMMUNOGLOBULIN G
     Indication: RHEUMATOID ARTHRITIS
     Dosage: THERAPY DURATION: 3 MONTHS
     Route: 042
  4. HYDROXYCHLOROQUINE [Suspect]
     Active Substance: HYDROXYCHLOROQUINE
     Indication: RHEUMATOID ARTHRITIS
     Route: 048
  5. PREDNISONE. [Suspect]
     Active Substance: PREDNISONE
     Indication: RHEUMATOID ARTHRITIS
     Dosage: THERAPY DURATION: 10 YEARS
     Route: 065
  6. TRIAMCINOLONE [Suspect]
     Active Substance: TRIAMCINOLONE
     Route: 065
  7. SULFASALAZINE. [Suspect]
     Active Substance: SULFASALAZINE
     Indication: RHEUMATOID ARTHRITIS
     Route: 048
  8. TOCILIZUMAB [Suspect]
     Active Substance: TOCILIZUMAB
     Indication: RHEUMATOID ARTHRITIS
     Dosage: THERAPY DURATION: 6 MONTHS
     Route: 042
  9. ADALIMUMAB [Suspect]
     Active Substance: ADALIMUMAB
     Indication: RHEUMATOID ARTHRITIS
     Dosage: THERAPY DURATION: 3 MONTHS
     Route: 065
  10. NAPROXEN. [Suspect]
     Active Substance: NAPROXEN
     Indication: RHEUMATOID ARTHRITIS
     Route: 065
  11. INFLIXIMAB [Suspect]
     Active Substance: INFLIXIMAB
     Indication: RHEUMATOID ARTHRITIS
     Dosage: THERAPY DURATION: 5 MONTHS
     Route: 042
  12. METHOTREXATE [Suspect]
     Active Substance: METHOTREXATE
     Indication: RHEUMATOID ARTHRITIS
     Route: 065
  13. ETANERCEPT [Suspect]
     Active Substance: ETANERCEPT
     Indication: RHEUMATOID ARTHRITIS
     Route: 058
  14. INFLIXIMAB [Suspect]
     Active Substance: INFLIXIMAB
     Dosage: THERAPY DURATION: 5 MONTHS
     Route: 042
  15. ABATACEPT [Suspect]
     Active Substance: ABATACEPT
     Indication: RHEUMATOID ARTHRITIS
     Dosage: THERAPY DURATION: 3 MONTHS
     Route: 041
  16. TRIAMCINOLONE [Suspect]
     Active Substance: TRIAMCINOLONE
     Indication: RHEUMATOID ARTHRITIS
     Route: 065

REACTIONS (15)
  - Dizziness [Unknown]
  - Body height below normal [Unknown]
  - Bone density decreased [Unknown]
  - Human antichimeric antibody positive [Unknown]
  - Nausea [Unknown]
  - Rheumatoid arthritis [Unknown]
  - Joint destruction [Unknown]
  - Synovitis [Unknown]
  - Vomiting [Unknown]
  - Diarrhoea [Unknown]
  - Drug effect decreased [Unknown]
  - Adrenal insufficiency [Unknown]
  - Drug ineffective [Unknown]
  - Obesity [Unknown]
  - Septic shock [Unknown]
